FAERS Safety Report 13551035 (Version 1)
Quarter: 2017Q2

REPORT INFORMATION
  Report Type: Spontaneous
  Country: US (occurrence: US)
  Receive Date: 20170516
  Receipt Date: 20170516
  Transmission Date: 20170830
  Serious: No
  Sender: FDA-Public Use
  Company Number: US-BRISTOL-MYERS SQUIBB COMPANY-BMS-2017-038652

PATIENT
  Age: 50 Year
  Sex: Female

DRUGS (2)
  1. ELIQUIS [Suspect]
     Active Substance: APIXABAN
     Indication: DEEP VEIN THROMBOSIS
     Route: 065
  2. ELIQUIS [Suspect]
     Active Substance: APIXABAN
     Indication: CEREBROVASCULAR ACCIDENT PROPHYLAXIS
     Dosage: 5 MG, BID
     Route: 048
     Dates: start: 20161012

REACTIONS (5)
  - Blood pressure diastolic increased [Unknown]
  - Alopecia [Recovered/Resolved]
  - Peripheral swelling [Unknown]
  - Swelling face [Unknown]
  - Chest discomfort [Unknown]

NARRATIVE: CASE EVENT DATE: 201611
